FAERS Safety Report 11167185 (Version 2)
Quarter: 2015Q2

REPORT INFORMATION
  Report Type: Spontaneous
  Country: US (occurrence: US)
  Receive Date: 20150605
  Receipt Date: 20150630
  Transmission Date: 20150821
  Serious: Yes (Hospitalization)
  Sender: FDA-Public Use
  Company Number: US-JNJFOC-20150521255

PATIENT
  Sex: Female
  Weight: 143.79 kg

DRUGS (17)
  1. INVOKANA [Suspect]
     Active Substance: CANAGLIFLOZIN
     Indication: TYPE 2 DIABETES MELLITUS
     Route: 048
     Dates: start: 201504, end: 20150507
  2. SIMVASTATIN. [Concomitant]
     Active Substance: SIMVASTATIN
     Dosage: AT BEDTIME
     Route: 048
  3. GABAPENTIN. [Concomitant]
     Active Substance: GABAPENTIN
     Route: 048
  4. LASIX [Concomitant]
     Active Substance: FUROSEMIDE
     Route: 048
  5. FLEXERIL [Concomitant]
     Active Substance: CYCLOBENZAPRINE HYDROCHLORIDE
     Route: 048
  6. INSULIN [Concomitant]
     Active Substance: INSULIN NOS
     Dosage: INSULIN SYRINGES 1 CC SHORT(6 MM)
     Route: 065
  7. NOVOLIN N [Concomitant]
     Active Substance: INSULIN HUMAN
     Dosage: DOSAGE: 100 UNITS/ML SUSPENSION 60 UNITS
     Route: 058
  8. VITAMIN D3 [Concomitant]
     Active Substance: CHOLECALCIFEROL
     Route: 048
  9. MAGNESIUM [Concomitant]
     Active Substance: MAGNESIUM
     Route: 048
  10. LISINOPRIL. [Concomitant]
     Active Substance: LISINOPRIL
     Route: 048
  11. METFORMIN [Concomitant]
     Active Substance: METFORMIN HYDROCHLORIDE
     Route: 048
     Dates: start: 201205
  12. METANX [Concomitant]
     Active Substance: LEVOMEFOLATE CALCIUM\METHYLCOBALAMIN\PYRIDOXAL PHOSPHATE ANHYDROUS
     Route: 048
  13. ASPIR-81 [Concomitant]
     Active Substance: ASPIRIN
     Dosage: DELAYED RELEASE TABLET
     Route: 048
  14. VITAMIN B12 [Concomitant]
     Active Substance: CYANOCOBALAMIN
     Route: 048
  15. VITAMIN C [Concomitant]
     Active Substance: ASCORBIC ACID
     Route: 048
  16. NOVOLIN R [Concomitant]
     Active Substance: INSULIN HUMAN
     Dosage: DOSAGE: 100 UNITS/ML SUSPENSION 60 UNITS
     Route: 058
  17. CLARITIN [Concomitant]
     Active Substance: LORATADINE
     Route: 048

REACTIONS (1)
  - Acute kidney injury [Recovered/Resolved]
